FAERS Safety Report 12689700 (Version 1)
Quarter: 2016Q3

REPORT INFORMATION
  Report Type: Spontaneous
  Country: US (occurrence: None)
  Receive Date: 20160825
  Receipt Date: 20160825
  Transmission Date: 20161109
  Serious: No
  Sender: FDA-Public Use
  Company Number: None

PATIENT
  Age: 70 Year
  Sex: Male
  Weight: 119.2 kg

DRUGS (1)
  1. OLODATEROL [Suspect]
     Active Substance: OLODATEROL
     Route: 055
     Dates: start: 20160211, end: 20160708

REACTIONS (2)
  - Asthenia [None]
  - Dizziness [None]

NARRATIVE: CASE EVENT DATE: 20160708
